FAERS Safety Report 19840196 (Version 1)
Quarter: 2021Q3

REPORT INFORMATION
  Report Type: Spontaneous
  Country: US (occurrence: US)
  Receive Date: 20210916
  Receipt Date: 20210916
  Transmission Date: 20211014
  Serious: No
  Sender: FDA-Public Use
  Company Number: None

PATIENT
  Age: 39 Year
  Sex: Female
  Weight: 52.2 kg

DRUGS (5)
  1. LEVOTHYROXINE 75 MCG ONCE DAILY [Concomitant]
  2. PRENATAL VITAMIN ONCE DAILY [Concomitant]
  3. ESTRADIOL 1 MG TWICE DAILY [Concomitant]
  4. FISH OIL ONCE DAILY [Concomitant]
  5. PROGESTERONE INJECTION [Suspect]
     Active Substance: PROGESTERONE
     Indication: INFERTILITY
     Dosage: ?          QUANTITY:10 INJECTION(S);?
     Route: 030
     Dates: start: 20210813

REACTIONS (3)
  - Haemorrhage in pregnancy [None]
  - Vaginal haemorrhage [None]
  - Maternal exposure during pregnancy [None]

NARRATIVE: CASE EVENT DATE: 20210907
